FAERS Safety Report 7942117-0 (Version None)
Quarter: 2011Q4

REPORT INFORMATION
  Report Type: 
  Country: None (occurrence: None)
  Receive Date: 20111122
  Receipt Date: 20111115
  Transmission Date: 20120403
  Serious: Yes (Other)
  Sender: FDA-Public Use
  Company Number: AUR-APL-2011-05836

PATIENT
  Age: 30 Year
  Sex: Male
  Weight: 57 kg

DRUGS (5)
  1. CLOZARIL [Suspect]
     Indication: SCHIZOPHRENIA
     Dosage: (575 MG) , ORAL
     Route: 048
     Dates: start: 20110329
  2. DEPAKOTE [Concomitant]
  3. HALOPERIDOL [Concomitant]
  4. VALPROATE SODIUM [Suspect]
     Indication: PRODUCT USED FOR UNKNOWN INDICATION
     Dosage: (2000 MG)
     Dates: start: 20111028
  5. CITALOPRAM HYDROBROMIDE [Suspect]
     Indication: PRODUCT USED FOR UNKNOWN INDICATION

REACTIONS (9)
  - MENTAL IMPAIRMENT [None]
  - HAEMATEMESIS [None]
  - AGITATION [None]
  - AGGRESSION [None]
  - HEART RATE INCREASED [None]
  - GRANDIOSITY [None]
  - GASTRITIS [None]
  - COGNITIVE DISORDER [None]
  - DELIRIUM [None]
